FAERS Safety Report 16092848 (Version 2)
Quarter: 2020Q1

REPORT INFORMATION
  Report Type: Report from Study
  Country: JP (occurrence: JP)
  Receive Date: 20190320
  Receipt Date: 20200219
  Transmission Date: 20200409
  Serious: Yes (Life-Threatening)
  Sender: FDA-Public Use
  Company Number: JP-TAKEDA-2019TJP006275

PATIENT

DRUGS (5)
  1. ESCRE [Suspect]
     Active Substance: CHLORAL HYDRATE
     Indication: SEDATION
     Dosage: UNK
     Route: 065
  2. TRICLORYL [Suspect]
     Active Substance: TRICLOFOS SODIUM
     Indication: SEDATION
     Dosage: UNK
     Route: 048
  3. ATARAX-P                           /00058403/ [Suspect]
     Active Substance: HYDROXYZINE PAMOATE
     Indication: SEDATION
     Dosage: UNK
     Route: 065
  4. RAMELTEON [Suspect]
     Active Substance: RAMELTEON
     Indication: SEDATION
     Dosage: UNK
     Route: 048
  5. RAVONA [Suspect]
     Active Substance: PENTOBARBITAL CALCIUM
     Indication: SEDATION
     Dosage: UNK
     Route: 048

REACTIONS (5)
  - Product administered to patient of inappropriate age [Unknown]
  - Injury [Unknown]
  - Dizziness [Unknown]
  - Respiratory arrest [Unknown]
  - Off label use [Unknown]
